FAERS Safety Report 17184289 (Version 2)
Quarter: 2020Q1

REPORT INFORMATION
  Report Type: Spontaneous
  Country: CN (occurrence: CN)
  Receive Date: 20191220
  Receipt Date: 20200107
  Transmission Date: 20200409
  Serious: Yes (Other)
  Sender: FDA-Public Use
  Company Number: CN-BRACCO-2019CN06682

PATIENT
  Age: 38 Year
  Sex: Male

DRUGS (2)
  1. SONOVUE [Suspect]
     Active Substance: SULFUR HEXAFLUORIDE
     Indication: ULTRASOUND KIDNEY
     Dosage: 1.2 ML, SINGLE
     Route: 042
     Dates: start: 20191212, end: 20191212
  2. NORMAL SALINE [Concomitant]
     Active Substance: SODIUM CHLORIDE
     Dosage: 5 ML, SINGLE; 0.9%
     Route: 042
     Dates: start: 20191212, end: 20191212

REACTIONS (6)
  - Abdominal pain [Recovered/Resolved]
  - Hypotension [Recovered/Resolved]
  - Off label use [Recovered/Resolved]
  - Rectal tenesmus [Recovered/Resolved]
  - Pallor [Recovered/Resolved]
  - Hyperhidrosis [Recovered/Resolved]

NARRATIVE: CASE EVENT DATE: 20191212
